FAERS Safety Report 5931344-X (Version None)
Quarter: 2008Q4

REPORT INFORMATION
  Report Type: 
  Country: None (occurrence: None)
  Receive Date: 20081024
  Receipt Date: 20081024
  Transmission Date: 20090506
  Serious: Yes (Other)
  Sender: FDA-Public Use
  Company Number: None

PATIENT
  Age: 30 Year
  Sex: Female
  Weight: 106.5953 kg

DRUGS (2)
  1. OCELLA BARR [Suspect]
     Indication: CONTRACEPTION
     Dosage: 1 DAILY PO
     Route: 048
     Dates: start: 20080922, end: 20081011
  2. OCELLA BARR [Suspect]
     Indication: POLYCYSTIC OVARIES
     Dosage: 1 DAILY PO
     Route: 048
     Dates: start: 20080922, end: 20081011

REACTIONS (5)
  - HYPOMENORRHOEA [None]
  - MENORRHAGIA [None]
  - MENSTRUAL DISORDER [None]
  - POLYMENORRHOEA [None]
  - PRODUCT QUALITY ISSUE [None]
